FAERS Safety Report 7833458-6 (Version None)
Quarter: 2011Q4

REPORT INFORMATION
  Report Type: 
  Country: None (occurrence: None)
  Receive Date: 20111020
  Receipt Date: 20111013
  Transmission Date: 20120403
  Serious: Yes (Other)
  Sender: FDA-Public Use
  Company Number: TPA2011A06585

PATIENT
  Age: 8 Decade
  Sex: Male

DRUGS (1)
  1. ULORIC [Suspect]
     Indication: GOUT
     Dosage: 40 MG, 1 IN 2 D, PER ORAL
     Route: 048
     Dates: start: 20101228, end: 20110222

REACTIONS (1)
  - STEVENS-JOHNSON SYNDROME [None]
